FAERS Safety Report 23056675 (Version 1)
Quarter: 2023Q4

REPORT INFORMATION
  Report Type: Spontaneous
  Country: US (occurrence: US)
  Receive Date: 20231012
  Receipt Date: 20231012
  Transmission Date: 20240109
  Serious: No
  Sender: FDA-Public Use
  Company Number: US-009507513-2308USA000007

PATIENT
  Sex: Male

DRUGS (5)
  1. VERQUVO [Suspect]
     Active Substance: VERICIGUAT
     Dosage: 2.5 MILLIGRAM, QD
     Route: 048
  2. VERQUVO [Suspect]
     Active Substance: VERICIGUAT
     Dosage: 5 MILLIGRAM, QD
     Route: 048
  3. VERQUVO [Suspect]
     Active Substance: VERICIGUAT
     Dosage: 10 MILLIGRAM, QD
     Route: 048
     Dates: end: 202307
  4. VERQUVO [Suspect]
     Active Substance: VERICIGUAT
     Dosage: 5 MILLIRAM, QD
     Route: 048
     Dates: start: 202307
  5. METOLAZONE [Concomitant]
     Active Substance: METOLAZONE

REACTIONS (1)
  - Swelling [Recovered/Resolved]

NARRATIVE: CASE EVENT DATE: 20230701
